FAERS Safety Report 9646145 (Version 3)
Quarter: 2014Q2

REPORT INFORMATION
  Report Type: Spontaneous
  Country: US (occurrence: US)
  Receive Date: 20131025
  Receipt Date: 20140417
  Transmission Date: 20141212
  Serious: Yes (Hospitalization, Other)
  Sender: FDA-Public Use
  Company Number: US-PFIZER INC-2013306268

PATIENT
  Age: 51 Year
  Sex: Female
  Weight: 77 kg

DRUGS (3)
  1. LYRICA [Suspect]
     Indication: FIBROMYALGIA
     Dosage: 300 MG, UNK
  2. OXYCONTIN [Concomitant]
     Indication: PAIN
     Dosage: 30 MG, UNK
  3. OXYCONTIN [Concomitant]
     Indication: FIBROMYALGIA

REACTIONS (4)
  - Diabetic coma [Unknown]
  - Diabetic coma [Unknown]
  - Diabetes mellitus [Unknown]
  - Asthenia [Not Recovered/Not Resolved]
